FAERS Safety Report 7711427-4 (Version None)
Quarter: 2011Q3

REPORT INFORMATION
  Report Type: 
  Country: None (occurrence: None)
  Receive Date: 20110826
  Receipt Date: 20110817
  Transmission Date: 20111222
  Serious: Yes (Death, Other)
  Sender: FDA-Public Use
  Company Number: JP-BAYER-2011-045545

PATIENT
  Age: 49 Year
  Sex: Female

DRUGS (3)
  1. BARACLUDE [Concomitant]
     Indication: HEPATITIS B
     Dosage: UNK
     Route: 048
     Dates: start: 20100409, end: 20110730
  2. URSO 250 [Concomitant]
     Indication: HEPATITIS B
     Dosage: UNK
     Route: 048
     Dates: start: 20100409, end: 20110730
  3. NEXAVAR [Suspect]
     Indication: HEPATIC NEOPLASM MALIGNANT
     Dosage: 400 MG, BID
     Route: 048
     Dates: start: 20110516, end: 20110518

REACTIONS (5)
  - MALAISE [None]
  - LIVER DISORDER [None]
  - ALANINE AMINOTRANSFERASE INCREASED [None]
  - HEPATIC NEOPLASM MALIGNANT [None]
  - PYREXIA [None]
